FAERS Safety Report 7986434 (Version 7)
Quarter: 2013Q4

REPORT INFORMATION
  Report Type: Spontaneous
  Country: FR (occurrence: FR)
  Receive Date: 20110610
  Receipt Date: 20131201
  Transmission Date: 20140711
  Serious: Yes (Hospitalization, Disabling, Other)
  Sender: FDA-Public Use
  Company Number: FR-ASTRAZENECA-2011SE33955

PATIENT
  Age: 17912 Day
  Sex: Female

DRUGS (5)
  1. XYLOCAINE [Suspect]
     Indication: NEURALGIA
     Dosage: 10 MG/ML
     Route: 042
     Dates: start: 20080528, end: 20080530
  2. XYLOCAINE [Suspect]
     Indication: ANAESTHESIA
     Dosage: 10 MG/ML
     Route: 042
     Dates: start: 20080528, end: 20080530
  3. KETAMIN [Suspect]
     Indication: NEURALGIA
     Route: 042
     Dates: start: 20080528
  4. KETAMIN [Suspect]
     Indication: NEURALGIA
     Route: 040
     Dates: start: 20080529, end: 20130529
  5. KETAMIN [Suspect]
     Indication: NEURALGIA
     Route: 042
     Dates: start: 20080529, end: 20110530

REACTIONS (33)
  - Tremor [Unknown]
  - Visual impairment [Not Recovered/Not Resolved]
  - Hyperacusis [Not Recovered/Not Resolved]
  - Dissociation [Unknown]
  - Sleep disorder due to general medical condition, insomnia type [Unknown]
  - Paraesthesia [Unknown]
  - Hypoaesthesia oral [Unknown]
  - Incorrect route of drug administration [Recovered/Resolved]
  - Accidental overdose [Unknown]
  - Hallucination [Recovered/Resolved]
  - Injection site pain [Unknown]
  - Anaesthesia [Unknown]
  - Chest pain [Unknown]
  - Malaise [Unknown]
  - Dry eye [Unknown]
  - Venous occlusion [Unknown]
  - Headache [Unknown]
  - Hallucination, auditory [Unknown]
  - Pallor [Unknown]
  - Leukoencephalopathy [Not Recovered/Not Resolved]
  - Eye pain [Not Recovered/Not Resolved]
  - Monoplegia [Unknown]
  - Smoke sensitivity [Unknown]
  - Panic reaction [Unknown]
  - Toxicity to various agents [Unknown]
  - Epilepsy [Unknown]
  - Optic neuritis [Not Recovered/Not Resolved]
  - Loss of consciousness [Recovered/Resolved]
  - Convulsion [Recovered/Resolved]
  - Tachycardia [Recovered/Resolved]
  - Tinnitus [Unknown]
  - Clonus [Unknown]
  - Nausea [Unknown]
